FAERS Safety Report 10507620 (Version 3)
Quarter: 2015Q3

REPORT INFORMATION
  Report Type: Spontaneous
  Country: US (occurrence: US)
  Receive Date: 20141009
  Receipt Date: 20150804
  Transmission Date: 20151125
  Serious: No
  Sender: FDA-Public Use
  Company Number: US-PFIZER INC-2014274730

PATIENT
  Age: 66 Year
  Sex: Female
  Weight: 73.92 kg

DRUGS (2)
  1. VENLAFAXINE HCL [Suspect]
     Active Substance: VENLAFAXINE HYDROCHLORIDE
     Dosage: 225 MG, 1X/DAY ( IN THE MORNING)
     Route: 048
  2. VENLAFAXINE HCL [Suspect]
     Active Substance: VENLAFAXINE HYDROCHLORIDE
     Dosage: UNK

REACTIONS (6)
  - Agitation [Unknown]
  - Disturbance in attention [Recovered/Resolved]
  - Distractibility [Recovered/Resolved]
  - Nervous system disorder [Unknown]
  - Dizziness [Unknown]
  - Feeling abnormal [Unknown]
